FAERS Safety Report 8836611 (Version 1)
Quarter: 2012Q4

REPORT INFORMATION
  Report Type: Spontaneous
  Country: FR (occurrence: None)
  Receive Date: 20121010
  Receipt Date: 20121010
  Transmission Date: 20130627
  Serious: Yes (Death, Life-Threatening, Hospitalization)
  Sender: FDA-Public Use
  Company Number: DSA_60054_2012

PATIENT
  Age: 89 Year
  Sex: Female

DRUGS (9)
  1. FLAGYL [Suspect]
     Indication: PYREXIA
     Dosage: (DF Oral)
     Route: 048
     Dates: start: 20120903, end: 20120904
  2. CALCIPARINE [Suspect]
     Indication: PROPHYLAXIS
     Dosage: (DF Subcutaneous)
     Route: 058
     Dates: start: 20120903, end: 20120904
  3. ROCEPHINE [Suspect]
     Indication: PYREXIA
     Dosage: (DF intravenous (not otherwise specified))
     Route: 042
     Dates: start: 20120903, end: 20120904
  4. ZYLORIC [Concomitant]
  5. TAVANIC [Concomitant]
  6. MOPRAL /00661201/ [Concomitant]
  7. PLAVIX (UNKNOWN) [Concomitant]
  8. ACEBUTOLOL (UNKNOWN) [Concomitant]
  9. COLCHICINE [Concomitant]

REACTIONS (6)
  - Angioedema [None]
  - Thrombocytopenia [None]
  - Lung disorder [None]
  - Pleural effusion [None]
  - Multi-organ failure [None]
  - Drug reaction with eosinophilia and systemic symptoms [None]
